FAERS Safety Report 6826809-2 (Version None)
Quarter: 2010Q3

REPORT INFORMATION
  Report Type: 
  Country: None (occurrence: None)
  Receive Date: 20100709
  Receipt Date: 20100630
  Transmission Date: 20110219
  Serious: Yes (Other)
  Sender: FDA-Public Use
  Company Number: GB-ROCHE-631117

PATIENT
  Age: 35 Year
  Sex: Male
  Weight: 111 kg

DRUGS (2)
  1. XENICAL [Suspect]
     Indication: WEIGHT CONTROL
     Dosage: WITHDRAWN.
     Route: 048
     Dates: start: 20080929, end: 20090213
  2. XENICAL [Suspect]
     Route: 048

REACTIONS (5)
  - HAEMOPTYSIS [None]
  - LOWER RESPIRATORY TRACT INFECTION [None]
  - PRODUCTIVE COUGH [None]
  - SINUSITIS [None]
  - SPUTUM DISCOLOURED [None]
